FAERS Safety Report 11281689 (Version 1)
Quarter: 2015Q3

REPORT INFORMATION
  Report Type: Spontaneous
  Country: US (occurrence: US)
  Receive Date: 20150717
  Receipt Date: 20150717
  Transmission Date: 20151125
  Serious: Yes (Hospitalization, Other)
  Sender: FDA-Public Use
  Company Number: US-GLAXOSMITHKLINE-US2015GSK103163

PATIENT
  Age: 89 Year
  Sex: Male

DRUGS (1)
  1. VOTRIENT [Suspect]
     Active Substance: PAZOPANIB HYDROCHLORIDE
     Indication: RENAL CELL CARCINOMA
     Dosage: UNK
     Dates: start: 20150616

REACTIONS (4)
  - Lower limb fracture [Unknown]
  - Blood sodium decreased [Unknown]
  - Monoplegia [Unknown]
  - Asthenia [Unknown]

NARRATIVE: CASE EVENT DATE: 20150628
